FAERS Safety Report 5004401-2 (Version None)
Quarter: 2006Q2

REPORT INFORMATION
  Report Type: 
  Country: None (occurrence: None)
  Receive Date: 20060517
  Receipt Date: 20050914
  Transmission Date: 20061013
  Serious: Yes (Other)
  Sender: FDA-Public Use
  Company Number: US-AVENTIS-200517535US

PATIENT
  Sex: Male
  Weight: 78 kg

DRUGS (15)
  1. LANTUS [Suspect]
     Indication: DIABETES MELLITUS NON-INSULIN-DEPENDENT
     Dosage: DOSE UNIT: UNITS
     Route: 058
     Dates: start: 20030220
  2. LANTUS [Suspect]
     Dosage: DOSE UNIT: UNITS
  3. LASIX [Concomitant]
  4. LISINOPRIL [Concomitant]
     Indication: HYPERTENSION
     Dates: start: 19980930
  5. GLIPIZIDE [Concomitant]
  6. EPLERENONE [Concomitant]
  7. LANOXIN [Concomitant]
     Indication: CARDIAC DISORDER
     Dates: start: 20040701
  8. PLAVIX [Concomitant]
  9. ASPIRIN [Concomitant]
  10. TOPROL-XL [Concomitant]
     Indication: CARDIAC FAILURE
     Dates: start: 20050601
  11. ZOCOR [Concomitant]
  12. NORVASC [Concomitant]
  13. ADVAIR DISKUS 100/50 [Concomitant]
  14. ALBUTEROL SULFATE AUTOHALER [Concomitant]
  15. REGULAR INSULIN [Concomitant]
     Dosage: DOSE: 20 TO 32 UNITS ^BASED ON THERAPY^

REACTIONS (8)
  - ARTERIAL OCCLUSIVE DISEASE [None]
  - ARTHROPATHY [None]
  - BLOOD GLUCOSE INCREASED [None]
  - CARDIAC FAILURE CHRONIC [None]
  - IMPAIRED HEALING [None]
  - NEUROPATHY [None]
  - PARAESTHESIA [None]
  - SKIN ULCER [None]
